FAERS Safety Report 18868369 (Version 2)
Quarter: 2021Q2

REPORT INFORMATION
  Report Type: Spontaneous
  Country: US (occurrence: US)
  Receive Date: 20210209
  Receipt Date: 20210401
  Transmission Date: 20210717
  Serious: Yes (Other)
  Sender: FDA-Public Use
  Company Number: US-GLENMARK PHARMACEUTICALS-2021GMK051927

PATIENT

DRUGS (1)
  1. LEVONORGESTREL TABLETS, 1.5 MG [Suspect]
     Active Substance: LEVONORGESTREL
     Indication: PRODUCT USED FOR UNKNOWN INDICATION
     Dosage: 1 DOSAGE FORM, UNK
     Route: 048
     Dates: start: 20210104

REACTIONS (4)
  - Product quality issue [Unknown]
  - Pregnancy on oral contraceptive [Unknown]
  - Drug ineffective [Unknown]
  - Abortion induced [Unknown]

NARRATIVE: CASE EVENT DATE: 20210126
